FAERS Safety Report 17430764 (Version 4)
Quarter: 2022Q1

REPORT INFORMATION
  Report Type: Spontaneous
  Country: US (occurrence: US)
  Receive Date: 20200218
  Receipt Date: 20220207
  Transmission Date: 20220424
  Serious: Yes (Other)
  Sender: FDA-Public Use
  Company Number: US-BIOCODEX2-202000082

PATIENT

DRUGS (9)
  1. DIACOMIT [Suspect]
     Active Substance: STIRIPENTOL
     Indication: Epilepsy
     Dosage: 500MG TWICE DAILY.
     Route: 065
     Dates: start: 20191113
  2. DIACOMIT [Suspect]
     Active Substance: STIRIPENTOL
     Dosage: 500MG TWICE DAILY.
     Route: 065
  3. CLOBAZAM [Concomitant]
     Active Substance: CLOBAZAM
     Indication: Severe myoclonic epilepsy of infancy
     Route: 065
  4. EPIDIOLEX [Concomitant]
     Active Substance: CANNABIDIOL
     Indication: Product used for unknown indication
     Route: 065
  5. FELBATOL [Concomitant]
     Active Substance: FELBAMATE
     Indication: Product used for unknown indication
     Route: 065
  6. LYRICA [Concomitant]
     Active Substance: PREGABALIN
     Indication: Product used for unknown indication
     Route: 065
  7. VITAMIN D NOS [Concomitant]
     Active Substance: VITAMIN D NOS
     Indication: Product used for unknown indication
     Route: 065
  8. CALCIUM [Concomitant]
     Active Substance: CALCIUM
     Indication: Product used for unknown indication
     Route: 065
  9. NAMENDA [Concomitant]
     Active Substance: MEMANTINE HYDROCHLORIDE
     Indication: Product used for unknown indication
     Route: 065

REACTIONS (5)
  - Seizure [Recovered/Resolved]
  - Condition aggravated [Recovered/Resolved]
  - Somnolence [Recovered/Resolved]
  - Product dose omission issue [Unknown]
  - Product use in unapproved indication [Unknown]

NARRATIVE: CASE EVENT DATE: 20191101
